FAERS Safety Report 17153682 (Version 1)
Quarter: 2019Q4

REPORT INFORMATION
  Report Type: Spontaneous
  Country: US (occurrence: US)
  Receive Date: 20191213
  Receipt Date: 20191213
  Transmission Date: 20200122
  Serious: No
  Sender: FDA-Public Use
  Company Number: US-ENDO PHARMACEUTICALS INC-2018-043272

PATIENT
  Age: 62 Year
  Sex: Male
  Weight: 113.38 kg

DRUGS (1)
  1. TESTIM [Suspect]
     Active Substance: TESTOSTERONE
     Indication: BLOOD TESTOSTERONE DECREASED
     Dosage: 100 MG, DAILY ONE PACKET ON EACH SHOULDER
     Route: 062
     Dates: start: 20181127

REACTIONS (5)
  - Product quality issue [Unknown]
  - Vertigo [Unknown]
  - Headache [Unknown]
  - Product odour abnormal [Unknown]
  - Nausea [Unknown]

NARRATIVE: CASE EVENT DATE: 20181127
